FAERS Safety Report 9628152 (Version 2)
Quarter: 2014Q2

REPORT INFORMATION
  Report Type: Spontaneous
  Country: US (occurrence: US)
  Receive Date: 20131017
  Receipt Date: 20140425
  Transmission Date: 20141212
  Serious: Yes (Hospitalization)
  Sender: FDA-Public Use
  Company Number: US-BIOGENIDEC-2013BI098766

PATIENT
  Age: 64 Year
  Sex: Female

DRUGS (2)
  1. AVONEX [Suspect]
     Indication: MULTIPLE SCLEROSIS
     Route: 030
     Dates: start: 19980201
  2. AVONEX [Suspect]
     Indication: MULTIPLE SCLEROSIS
     Route: 030
     Dates: start: 20120101

REACTIONS (8)
  - Eye haemorrhage [Unknown]
  - Eye injury [Unknown]
  - Photopsia [Unknown]
  - Abdominal discomfort [Not Recovered/Not Resolved]
  - Headache [Not Recovered/Not Resolved]
  - Depression [Not Recovered/Not Resolved]
  - Insomnia [Not Recovered/Not Resolved]
  - Pyrexia [Not Recovered/Not Resolved]
